FAERS Safety Report 24397055 (Version 1)
Quarter: 2024Q4

REPORT INFORMATION
  Report Type: Spontaneous
  Country: US (occurrence: None)
  Receive Date: 20241003
  Receipt Date: 20241003
  Transmission Date: 20250115
  Serious: Yes (Hospitalization)
  Sender: Public
  Company Number: None

PATIENT
  Age: 86 Year
  Sex: Male
  Weight: 86 kg

DRUGS (2)
  1. APIXABAN [Suspect]
     Active Substance: APIXABAN
     Indication: Atrial fibrillation
     Dosage: FREQUENCY : TWICE A DAY;?
     Route: 048
  2. DICLOFENAC SODIUM 1% GEL [Suspect]
     Active Substance: DICLOFENAC SODIUM
     Dosage: FREQUENCY : 4 TIMES A DAY;?
     Route: 061

REACTIONS (5)
  - Gastrointestinal haemorrhage [None]
  - Anaemia [None]
  - Dyspnoea [None]
  - Chest pain [None]
  - Constipation [None]

NARRATIVE: CASE EVENT DATE: 20240410
